FAERS Safety Report 6748019-X (Version None)
Quarter: 2010Q2

REPORT INFORMATION
  Report Type: 
  Country: None (occurrence: None)
  Receive Date: 20100530
  Receipt Date: 20100526
  Transmission Date: 20101027
  Serious: Yes (Other)
  Sender: FDA-Public Use
  Company Number: CN-BRISTOL-MYERS SQUIBB COMPANY-15094303

PATIENT
  Age: 54 Year
  Sex: Female

DRUGS (1)
  1. DASATINIB [Suspect]
     Indication: LEUKAEMIA
     Dosage: INTERRUPTED ON 06MAY2010. 140MG:10SEP08TO03APR09 100MG:22APR09TO07DEC09 80:15DEC09TO04MAY10
     Route: 048
     Dates: start: 20080910

REACTIONS (1)
  - OSTEONECROSIS [None]
